FAERS Safety Report 7524420-1 (Version None)
Quarter: 2011Q2

REPORT INFORMATION
  Report Type: 
  Country: None (occurrence: None)
  Receive Date: 20110606
  Receipt Date: 20110531
  Transmission Date: 20111010
  Serious: Yes (Death, Other)
  Sender: FDA-Public Use
  Company Number: PHHY2011MX13336

PATIENT
  Age: 69 Year
  Sex: Female

DRUGS (1)
  1. RASILEZ [Suspect]
     Indication: HYPERTENSION
     Dosage: 2 DF, QD
     Dates: start: 20100915

REACTIONS (6)
  - CARDIAC ARREST [None]
  - RESPIRATORY FAILURE [None]
  - HEPATIC FAILURE [None]
  - MULTI-ORGAN FAILURE [None]
  - RENAL DISORDER [None]
  - FLUID RETENTION [None]
